FAERS Safety Report 26174615 (Version 1)
Quarter: 2025Q4

REPORT INFORMATION
  Report Type: Spontaneous
  Country: CN (occurrence: CN)
  Receive Date: 20251218
  Receipt Date: 20251218
  Transmission Date: 20260117
  Serious: Yes (Other)
  Sender: BAYER HEALTHCARE PHARMACEUTICALS INC.
  Company Number: CN-BAYER-2025A165259

PATIENT
  Sex: Male

DRUGS (1)
  1. KERENDIA [Suspect]
     Active Substance: FINERENONE
     Indication: Diabetic nephropathy
     Dosage: 1 DF
     Route: 048
     Dates: start: 20251216

REACTIONS (5)
  - Blood pressure increased [None]
  - Blood potassium increased [None]
  - Blood calcium decreased [None]
  - Blood iron decreased [None]
  - Discomfort [None]

NARRATIVE: CASE EVENT DATE: 20251216
